FAERS Safety Report 5197666-8 (Version None)
Quarter: 2007Q1

REPORT INFORMATION
  Report Type: 
  Country: None (occurrence: None)
  Receive Date: 20070103
  Receipt Date: 20061225
  Transmission Date: 20070707
  Serious: Yes (Hospitalization)
  Sender: FDA-Public Use
  Company Number: JP-ABBOTT-06P-087-0354257-00

PATIENT
  Age: 54 Year
  Sex: Male

DRUGS (17)
  1. BIPERIDEN HYDROCHLORIDE TAB [Suspect]
     Indication: ALCOHOLIC PSYCHOSIS
     Route: 048
     Dates: end: 20040601
  2. BIPERIDEN HYDROCHLORIDE TAB [Suspect]
     Indication: INSOMNIA
  3. BIPERIDEN HYDROCHLORIDE TAB [Suspect]
     Indication: IRRITABILITY
  4. ESTAZOLAM [Suspect]
     Indication: ALCOHOLIC PSYCHOSIS
     Route: 048
     Dates: end: 20040601
  5. ESTAZOLAM [Suspect]
     Indication: INSOMNIA
  6. ESTAZOLAM [Suspect]
     Indication: IRRITABILITY
  7. CARBAMAZEPINE [Suspect]
     Indication: ALCOHOLIC PSYCHOSIS
     Route: 048
     Dates: end: 20040601
  8. CARBAMAZEPINE [Suspect]
     Indication: INSOMNIA
  9. CARBAMAZEPINE [Suspect]
     Indication: IRRITABILITY
  10. CHLORPROMAZINE [Suspect]
     Indication: ALCOHOLIC PSYCHOSIS
     Route: 048
     Dates: end: 20040601
  11. CHLORPROMAZINE [Suspect]
     Indication: INSOMNIA
  12. CHLORPROMAZINE [Suspect]
     Indication: IRRITABILITY
  13. HALOPERIDOL [Suspect]
     Indication: ALCOHOLIC PSYCHOSIS
     Route: 048
     Dates: end: 20040601
  14. HALOPERIDOL [Suspect]
     Indication: INSOMNIA
  15. HALOPERIDOL [Suspect]
     Indication: IRRITABILITY
  16. ANTI-DIABETICS [Concomitant]
     Indication: DRUG USE FOR UNKNOWN INDICATION
     Route: 048
  17. LAXATIVES [Concomitant]
     Indication: CONSTIPATION
     Route: 048

REACTIONS (2)
  - ILEUS PARALYTIC [None]
  - NEUROLEPTIC MALIGNANT SYNDROME [None]
